FAERS Safety Report 9757697 (Version 2)
Quarter: 2013Q4

REPORT INFORMATION
  Report Type: Spontaneous
  Country: DE (occurrence: DE)
  Receive Date: 20131216
  Receipt Date: 20131219
  Transmission Date: 20140711
  Serious: Yes (Other)
  Sender: FDA-Public Use
  Company Number: DE-BIOGENIDEC-2013BI118596

PATIENT
  Age: 54 Year
  Sex: Male
  Weight: 81 kg

DRUGS (2)
  1. TYSABRI [Suspect]
     Indication: RELAPSING-REMITTING MULTIPLE SCLEROSIS
     Route: 042
     Dates: start: 20130424, end: 20131209
  2. MICTONORM [Concomitant]
     Indication: URGE INCONTINENCE

REACTIONS (1)
  - Angioedema [Recovered/Resolved]
